FAERS Safety Report 12992613 (Version 1)
Quarter: 2016Q4

REPORT INFORMATION
  Report Type: Report from Study
  Country: NL (occurrence: NL)
  Receive Date: 20161202
  Receipt Date: 20161202
  Transmission Date: 20170207
  Serious: Yes (Hospitalization)
  Sender: FDA-Public Use
  Company Number: NL-ROCHE-1861332

PATIENT
  Age: 61 Year
  Sex: Female

DRUGS (3)
  1. CAPECITABINE. [Suspect]
     Active Substance: CAPECITABINE
     Indication: COLORECTAL CANCER METASTATIC
     Dosage: LATEST CYCLE 7 ON 04/NOV/2016
     Route: 065
     Dates: start: 201602
  2. BEVACIZUMAB [Suspect]
     Active Substance: BEVACIZUMAB
     Indication: COLORECTAL CANCER METASTATIC
     Dosage: LATEST CYCLE 7 ON 04/NOV/2016
     Route: 065
     Dates: start: 201602
  3. OXALIPLATIN. [Suspect]
     Active Substance: OXALIPLATIN
     Indication: COLORECTAL CANCER METASTATIC
     Route: 065
     Dates: start: 201602

REACTIONS (2)
  - Biloma [Recovered/Resolved]
  - Perforation bile duct [Recovered/Resolved]

NARRATIVE: CASE EVENT DATE: 20161105
